FAERS Safety Report 12259936 (Version 6)
Quarter: 2017Q3

REPORT INFORMATION
  Report Type: Report from Study
  Country: US (occurrence: US)
  Receive Date: 20160412
  Receipt Date: 20170724
  Transmission Date: 20171127
  Serious: Yes (Hospitalization)
  Sender: FDA-Public Use
  Company Number: US-ACTELION-A-US2016-134331

PATIENT
  Age: 73 Year
  Sex: Female
  Weight: 70.3 kg

DRUGS (4)
  1. TRACLEER [Suspect]
     Active Substance: BOSENTAN
     Indication: PULMONARY ARTERIAL HYPERTENSION
     Dosage: 125 MG, BID
     Route: 048
     Dates: start: 20070115
  2. NORVASC [Concomitant]
     Active Substance: AMLODIPINE BESYLATE
  3. COUMADIN [Concomitant]
     Active Substance: WARFARIN SODIUM
  4. AMLODIPINE [Concomitant]
     Active Substance: AMLODIPINE BESYLATE

REACTIONS (6)
  - Plastic surgery to the face [Unknown]
  - Skin abrasion [Unknown]
  - Lower limb fracture [Unknown]
  - Fall [Unknown]
  - Fracture treatment [Unknown]
  - Nasal injury [Unknown]

NARRATIVE: CASE EVENT DATE: 20170508
